FAERS Safety Report 8819227 (Version 1)
Quarter: 2012Q4

REPORT INFORMATION
  Report Type: 
  Country: US (occurrence: US)
  Receive Date: 20121001
  Receipt Date: 20121001
  Transmission Date: 20130627
  Serious: No
  Sender: FDA-Public Use
  Company Number: US-PFIZER INC-2012239705

PATIENT
  Sex: Female

DRUGS (2)
  1. BICILLIN L-A [Suspect]
     Dosage: 1.2 million, UNK
  2. BICILLIN L-A [Suspect]
     Dosage: 2.4 million, UNK

REACTIONS (1)
  - Pain [Unknown]
